FAERS Safety Report 20158790 (Version 9)
Quarter: 2023Q4

REPORT INFORMATION
  Report Type: Report from Study
  Country: FR (occurrence: None)
  Receive Date: 20211208
  Receipt Date: 20231114
  Transmission Date: 20240110
  Serious: Yes (Hospitalization, Disabling, Other)
  Sender: FDA-Public Use
  Company Number: FR-ROCHE-2970267

PATIENT
  Sex: Female

DRUGS (3)
  1. ATEZOLIZUMAB [Suspect]
     Active Substance: ATEZOLIZUMAB
     Indication: Uterine cancer
     Dosage: FOR A CUMULATIVE DOSE OF 8400 MG TILL 20/OCT/2021, LAST DOSE ADMINISTERED ON 08/FEB/2022 FOR A CUMUL
     Route: 041
     Dates: start: 20210614, end: 20211020
  2. ATEZOLIZUMAB [Suspect]
     Active Substance: ATEZOLIZUMAB
     Indication: Uterine cancer
  3. ACETAMINOPHEN\CODEINE PHOSPHATE [Concomitant]
     Active Substance: ACETAMINOPHEN\CODEINE PHOSPHATE

REACTIONS (3)
  - Arthralgia [Not Recovered/Not Resolved]
  - Femoral neck fracture [Recovered/Resolved]
  - Pelvic fracture [Recovered/Resolved]

NARRATIVE: CASE EVENT DATE: 20211107
